FAERS Safety Report 16672492 (Version 2)
Quarter: 2019Q3

REPORT INFORMATION
  Report Type: Spontaneous
  Country: TW (occurrence: TW)
  Receive Date: 20190806
  Receipt Date: 20190827
  Transmission Date: 20191004
  Serious: Yes (Hospitalization, Other)
  Sender: FDA-Public Use
  Company Number: TW-TAKEDA-2019TJP017988

PATIENT
  Age: 91 Year
  Sex: Male

DRUGS (16)
  1. TAKEPRON OD [Suspect]
     Active Substance: LANSOPRAZOLE
     Indication: ENDOSCOPY UPPER GASTROINTESTINAL TRACT
     Dosage: UNK UNK, QD
     Route: 048
     Dates: start: 20190722, end: 20190726
  2. DOXAZOSIN [Concomitant]
     Active Substance: DOXAZOSIN MESYLATE
     Dosage: UNK
  3. BISOPROLOL [Concomitant]
     Active Substance: BISOPROLOL
     Dosage: UNK, QD
  4. ACTRAPID [Concomitant]
     Active Substance: INSULIN HUMAN
     Dosage: UNK
  5. SUWELL [Concomitant]
     Dosage: UNK, BID
  6. SODIUM CHLORIDE. [Concomitant]
     Active Substance: SODIUM CHLORIDE
     Dosage: 500 MILLILITER, QD
  7. NOVORAPID [Concomitant]
     Active Substance: INSULIN ASPART
     Dosage: UNK, TID
  8. ROSUVASTATIN. [Concomitant]
     Active Substance: ROSUVASTATIN
     Dosage: UNK, QD
  9. AMLODIPINE [Concomitant]
     Active Substance: AMLODIPINE BESYLATE
     Dosage: UNK, QD
  10. SODIUM CHLORIDE. [Concomitant]
     Active Substance: SODIUM CHLORIDE
     Dosage: 500 MILLILITER
  11. DEXTROSE. [Concomitant]
     Active Substance: DEXTROSE
     Dosage: 500 MILLILITER, QD
  12. SODIUM CHLORIDE. [Concomitant]
     Active Substance: SODIUM CHLORIDE
     Dosage: 500 MILLILITER, QD
  13. ACTRAPID [Concomitant]
     Active Substance: INSULIN HUMAN
     Dosage: UNK, QD
  14. ACETYLSALICYLIC ACID [Concomitant]
     Active Substance: ASPIRIN
     Dosage: UNK UNK, QD
  15. CLONAZEPAM. [Concomitant]
     Active Substance: CLONAZEPAM
     Dosage: UNK
  16. FAMOTIDINE. [Concomitant]
     Active Substance: FAMOTIDINE
     Dosage: UNK

REACTIONS (6)
  - Erythema multiforme [Recovered/Resolved]
  - Rash [Recovered/Resolved]
  - Asthma [Recovered/Resolved]
  - Pneumonitis [Recovered/Resolved]
  - Bronchial oedema [Recovered/Resolved]
  - Stevens-Johnson syndrome [Recovered/Resolved]

NARRATIVE: CASE EVENT DATE: 20190724
